FAERS Safety Report 7347642-1 (Version None)
Quarter: 2011Q1

REPORT INFORMATION
  Report Type: 
  Country: None (occurrence: None)
  Receive Date: 20110311
  Receipt Date: 20101129
  Transmission Date: 20110831
  Serious: Yes (Disabling)
  Sender: FDA-Public Use
  Company Number: A0896714A

PATIENT
  Age: 66 Year
  Sex: Female

DRUGS (2)
  1. ALBUTEROL [Concomitant]
  2. ADVAIR DISKUS 100/50 [Suspect]
     Indication: CHRONIC OBSTRUCTIVE PULMONARY DISEASE
     Dosage: 1PUFF TWICE PER DAY
     Route: 055
     Dates: start: 20041101, end: 20100701

REACTIONS (8)
  - LICHEN PLANUS [None]
  - ONYCHOMADESIS [None]
  - ALOPECIA [None]
  - ILL-DEFINED DISORDER [None]
  - SKIN LESION [None]
  - SKIN ULCER [None]
  - SCAR [None]
  - FATIGUE [None]
